FAERS Safety Report 7774114-2 (Version None)
Quarter: 2011Q3

REPORT INFORMATION
  Report Type: 
  Country: None (occurrence: None)
  Receive Date: 20110923
  Receipt Date: 20110912
  Transmission Date: 20111222
  Serious: Yes (Other)
  Sender: FDA-Public Use
  Company Number: FR-JNJFOC-20110707865

PATIENT
  Sex: Female
  Weight: 86 kg

DRUGS (6)
  1. REMICADE [Suspect]
     Dosage: 15TH OR 16TH INFUSION
     Route: 042
     Dates: start: 20101026, end: 20101101
  2. REMICADE [Suspect]
     Dosage: 15TH OR 16TH INFUSION
     Route: 042
     Dates: start: 20101026, end: 20101101
  3. REMICADE [Suspect]
     Indication: PSORIASIS
     Route: 042
     Dates: start: 20100908
  4. REMICADE [Suspect]
     Route: 042
  5. REMICADE [Suspect]
     Route: 042
     Dates: start: 20100908
  6. REMICADE [Suspect]
     Indication: ANKYLOSING SPONDYLITIS
     Route: 042

REACTIONS (4)
  - ANKYLOSING SPONDYLITIS [None]
  - TOOTH EXTRACTION [None]
  - GINGIVAL INFECTION [None]
  - BONE GRAFT [None]
